FAERS Safety Report 5353400-X (Version None)
Quarter: 2007Q2

REPORT INFORMATION
  Report Type: 
  Country: None (occurrence: None)
  Receive Date: 20070612
  Receipt Date: 20070605
  Transmission Date: 20071010
  Serious: Yes (Other)
  Sender: FDA-Public Use
  Company Number: US-BRACCO-BDI-009535

PATIENT
  Sex: Male

DRUGS (9)
  1. PROHANCE [Suspect]
     Route: 050
     Dates: start: 20060907, end: 20060907
  2. PROHANCE [Suspect]
     Route: 050
     Dates: start: 20060907, end: 20060907
  3. OMNISCAN [Suspect]
     Route: 050
     Dates: start: 20060910, end: 20060910
  4. OMNISCAN [Suspect]
     Route: 050
     Dates: start: 20060910, end: 20060910
  5. OMNISCAN [Suspect]
     Route: 050
     Dates: start: 20060901, end: 20060901
  6. OMNISCAN [Suspect]
     Route: 050
     Dates: start: 20060901, end: 20060901
  7. OMNISCAN [Suspect]
     Indication: BACK DISORDER
     Route: 050
     Dates: start: 20061001, end: 20061001
  8. OMNISCAN [Suspect]
     Route: 050
     Dates: start: 20061001, end: 20061001
  9. SEE SECTIONS B AND C;  OTHERWISE UNKNOWN AT PRESENT [Concomitant]

REACTIONS (1)
  - NEPHROGENIC FIBROSING DERMOPATHY [None]
